FAERS Safety Report 11591092 (Version 2)
Quarter: 2015Q4

REPORT INFORMATION
  Report Type: Report from Study
  Country: CO (occurrence: CO)
  Receive Date: 20151003
  Receipt Date: 20151007
  Transmission Date: 20160304
  Serious: Yes (Death, Life-Threatening)
  Sender: FDA-Public Use
  Company Number: CO-AMGEN-COLSL2015101872

PATIENT
  Age: 75 Year
  Sex: Male
  Weight: 65 kg

DRUGS (1)
  1. VECTIBIX [Suspect]
     Active Substance: PANITUMUMAB
     Indication: COLORECTAL CANCER METASTATIC
     Dosage: 390 MG, EVERY 15 DAYS
     Route: 042
     Dates: start: 20140401, end: 20150904

REACTIONS (1)
  - General physical health deterioration [Fatal]
